FAERS Safety Report 4432294-0 (Version None)
Quarter: 2004Q3

REPORT INFORMATION
  Report Type: 
  Country: None (occurrence: None)
  Receive Date: 20040820
  Receipt Date: 20040809
  Transmission Date: 20050211
  Serious: Yes (Other)
  Sender: FDA-Public Use
  Company Number: 2004046611

PATIENT
  Age: 75 Year
  Sex: Female

DRUGS (5)
  1. CITALOR (ATORVASTATIN) [Suspect]
     Indication: DYSLIPIDAEMIA
     Dosage: 10 MG (10 MG,  1 IN  1 D), ORAL
     Route: 048
     Dates: start: 19990301
  2. INSULIN [Concomitant]
  3. ANTIHYPERTENSIVES (IANTIHYPERTENSIVES) [Concomitant]
  4. NIFEDIPINE [Concomitant]
  5. METHYLDOPA [Concomitant]

REACTIONS (4)
  - DIALYSIS [None]
  - MIGRATION OF IMPLANT [None]
  - POST PROCEDURAL PAIN [None]
  - RENAL DISORDER [None]
